FAERS Safety Report 21436830 (Version 1)
Quarter: 2022Q4

REPORT INFORMATION
  Report Type: Spontaneous
  Country: US (occurrence: US)
  Receive Date: 20221010
  Receipt Date: 20221010
  Transmission Date: 20230113
  Serious: Yes (Other)
  Sender: FDA-Public Use
  Company Number: US-MYLANLABS-2022M1112757

PATIENT
  Age: 60 Year
  Sex: Male

DRUGS (17)
  1. PREDNISONE [Suspect]
     Active Substance: PREDNISONE
     Indication: Autoinflammatory disease
     Dosage: UNK, QD, AVERAGE DOSAGE 20 MG/DAY
     Route: 048
  2. ADALIMUMAB [Suspect]
     Active Substance: ADALIMUMAB
     Indication: Autoinflammatory disease
     Dosage: 40 MILLIGRAM, BIWEEKLY
     Route: 058
  3. ADALIMUMAB [Suspect]
     Active Substance: ADALIMUMAB
     Dosage: 40 MILLIGRAM, QW
     Route: 058
  4. SECUKINUMAB [Suspect]
     Active Substance: SECUKINUMAB
     Indication: Autoinflammatory disease
     Dosage: 150 MILLIGRAM, QW, FOR 4 WEEKS
     Route: 058
  5. SECUKINUMAB [Suspect]
     Active Substance: SECUKINUMAB
     Dosage: 150 MILLIGRAM, MONTHLY, TOTAL 3 MONTHS
     Route: 058
  6. SECUKINUMAB [Suspect]
     Active Substance: SECUKINUMAB
     Dosage: 300 MILLIGRAM, MONTHLY
     Route: 058
  7. INFLIXIMAB [Suspect]
     Active Substance: INFLIXIMAB
     Indication: Autoinflammatory disease
     Dosage: 5 MILLIGRAM/KILOGRAM, WEEK 0,2,6
     Route: 042
  8. INFLIXIMAB [Suspect]
     Active Substance: INFLIXIMAB
     Dosage: 5 MILLIGRAM/KILOGRAM, EVERY 6 WEEKS,  TOTAL 3 MONTHS
     Route: 042
  9. INFLIXIMAB [Suspect]
     Active Substance: INFLIXIMAB
     Dosage: 10 MILLIGRAM/KILOGRAM, EVERY 4 WEEKS, FOR 3 MONTHS
     Route: 042
  10. RITUXIMAB [Suspect]
     Active Substance: RITUXIMAB
     Indication: Autoinflammatory disease
     Dosage: 1000 MILLIGRAM, Q2W, 1000 MG X 2, INTRAVENOUSLY SEPARATED BY 14 DAYS
     Route: 042
  11. ANAKINRA [Concomitant]
     Active Substance: ANAKINRA
     Indication: Autoinflammatory disease
     Dosage: 100 MILLIGRAM, QD
     Route: 058
  12. RILONACEPT [Concomitant]
     Active Substance: RILONACEPT
     Indication: Autoinflammatory disease
     Dosage: 320 MILLIGRAM, QD
     Route: 058
  13. RILONACEPT [Concomitant]
     Active Substance: RILONACEPT
     Dosage: 160 MILLIGRAM, QW, TOTAL 3 MONTHS
     Route: 058
  14. CANAKINUMAB [Concomitant]
     Active Substance: CANAKINUMAB
     Indication: Autoinflammatory disease
     Dosage: 150 MILLIGRAM, EVERY 4 WEEKS
     Route: 058
  15. CANAKINUMAB [Concomitant]
     Active Substance: CANAKINUMAB
     Dosage: 300 MILLIGRAM, EVERY 4 WEEKS
     Route: 058
  16. TOCILIZUMAB [Concomitant]
     Active Substance: TOCILIZUMAB
     Indication: Autoinflammatory disease
     Dosage: 8 MILLIGRAM/KILOGRAM, MONTHLY
     Route: 042
  17. TOFACITINIB [Concomitant]
     Active Substance: TOFACITINIB
     Indication: Autoinflammatory disease
     Dosage: 11 MILLIGRAM, QD
     Route: 048

REACTIONS (4)
  - Type 2 diabetes mellitus [Unknown]
  - Cataract [Unknown]
  - Mycobacterium chelonae infection [Unknown]
  - Therapy non-responder [Unknown]
